FAERS Safety Report 15159195 (Version 1)
Quarter: 2018Q3

REPORT INFORMATION
  Report Type: Spontaneous
  Country: US (occurrence: US)
  Receive Date: 20180718
  Receipt Date: 20180718
  Transmission Date: 20181010
  Serious: No
  Sender: FDA-Public Use
  Company Number: US-TEVA-2018-US-926469

PATIENT
  Sex: Female

DRUGS (1)
  1. AMPHETAMINE W/DEXTROAMPHETAMINE [Suspect]
     Active Substance: AMPHETAMINE SULFATE\DEXTROAMPHETAMINE
     Dates: start: 201706, end: 20180413

REACTIONS (4)
  - Contusion [Unknown]
  - Infection [Unknown]
  - Rash [Unknown]
  - Scratch [Unknown]

NARRATIVE: CASE EVENT DATE: 20180201
